FAERS Safety Report 15886163 (Version 1)
Quarter: 2019Q1

REPORT INFORMATION
  Report Type: Spontaneous
  Country: FR (occurrence: FR)
  Receive Date: 20190129
  Receipt Date: 20190129
  Transmission Date: 20190417
  Serious: Yes (Life-Threatening)
  Sender: FDA-Public Use
  Company Number: FR-PFIZER INC-2019034994

PATIENT
  Age: 44 Year
  Sex: Female
  Weight: 65 kg

DRUGS (7)
  1. VENTOLINE [SALBUTAMOL SULFATE] [Concomitant]
     Active Substance: ALBUTEROL SULFATE
     Indication: ASTHMA
     Dosage: 5MG/DOSE
     Route: 055
     Dates: start: 20181204
  2. ATROVENT [Concomitant]
     Active Substance: IPRATROPIUM BROMIDE
     Indication: ASTHMA
     Dosage: 0.5MG/DOSE
     Route: 055
     Dates: start: 20181204
  3. SOLU-MEDROL [Suspect]
     Active Substance: METHYLPREDNISOLONE SODIUM SUCCINATE
     Indication: BRONCHOSPASM
     Dosage: 60 MG, 1X/DAY
     Route: 042
     Dates: start: 20181204, end: 20181206
  4. BUDESONIDE. [Concomitant]
     Active Substance: BUDESONIDE
     Dosage: 64 MG/DOSE, 2 DOSES IN THE MORNING
  5. PREDNISOLONE. [Concomitant]
     Active Substance: PREDNISOLONE
     Dosage: 60 MG IN THE MORNING
  6. SERETIDE [Concomitant]
     Active Substance: FLUTICASONE PROPIONATE\SALMETEROL XINAFOATE
     Dosage: 2 INHALATIONS TWICE A DAY
  7. FLUTICASONE. [Concomitant]
     Active Substance: FLUTICASONE
     Dosage: 27.5MG / DOSE 2 SPRAYS IN EACH NOSTRIL / DAY AT THE SAME TIME

REACTIONS (3)
  - Bronchospasm [Recovering/Resolving]
  - Asthma [Recovering/Resolving]
  - Cardio-respiratory arrest [Recovered/Resolved]

NARRATIVE: CASE EVENT DATE: 20181204
